FAERS Safety Report 15560265 (Version 1)
Quarter: 2018Q4

REPORT INFORMATION
  Report Type: Spontaneous
  Country: AU (occurrence: AU)
  Receive Date: 20181027
  Receipt Date: 20181027
  Transmission Date: 20190205
  Serious: Yes (Hospitalization)
  Sender: FDA-Public Use
  Company Number: None

PATIENT
  Age: 35 Year
  Sex: Female
  Weight: 84 kg

DRUGS (2)
  1. CYMBALTA [Suspect]
     Active Substance: DULOXETINE HYDROCHLORIDE
     Indication: ANXIETY
     Route: 048
     Dates: start: 20180628, end: 20181019
  2. CYMBALTA [Suspect]
     Active Substance: DULOXETINE HYDROCHLORIDE
     Indication: DEPRESSION
     Route: 048
     Dates: start: 20180628, end: 20181019

REACTIONS (7)
  - Impaired work ability [None]
  - Drug withdrawal syndrome [None]
  - Paraesthesia [None]
  - Insomnia [None]
  - Myalgia [None]
  - Musculoskeletal stiffness [None]
  - Head discomfort [None]

NARRATIVE: CASE EVENT DATE: 20181023
